FAERS Safety Report 5210217-4 (Version None)
Quarter: 2006Q4

REPORT INFORMATION
  Report Type: 
  Country: None (occurrence: None)
  Receive Date: 20061127
  Receipt Date: 20051118
  Transmission Date: 20070319
  Serious: Yes (Other)
  Sender: FDA-Public Use
  Company Number: 2005BH003193

PATIENT
  Sex: Female

DRUGS (1)
  1. DIANEAL [Suspect]
     Indication: DRUG USE FOR UNKNOWN INDICATION
     Dosage: IP
     Route: 033

REACTIONS (1)
  - PERITONITIS [None]
